FAERS Safety Report 5654286-6 (Version None)
Quarter: 2008Q1

REPORT INFORMATION
  Report Type: 
  Country: None (occurrence: None)
  Receive Date: 20080305
  Receipt Date: 20080220
  Transmission Date: 20080703
  Serious: Yes (Other)
  Sender: FDA-Public Use
  Company Number: 230928J08USA

PATIENT
  Age: 63 Year
  Sex: Female

DRUGS (6)
  1. REBIF [Suspect]
     Indication: MULTIPLE SCLEROSIS
     Dosage: 44 MCG, 3 IN 1 WEEKS, SUBCUTANEOUS
     Route: 058
     Dates: start: 20050725
  2. LISINOPRIL [Concomitant]
  3. LIPITOR [Concomitant]
  4. TRAMADOL HCL [Concomitant]
  5. DOCUSATE (DOCUSATE) [Concomitant]
  6. EVISTA [Concomitant]

REACTIONS (3)
  - ARTHRALGIA [None]
  - MUSCLE ATROPHY [None]
  - NERVE COMPRESSION [None]
